FAERS Safety Report 5965507-4 (Version None)
Quarter: 2008Q4

REPORT INFORMATION
  Report Type: 
  Country: None (occurrence: None)
  Receive Date: 20081125
  Receipt Date: 20081119
  Transmission Date: 20090506
  Serious: No
  Sender: FDA-Public Use
  Company Number: AU-ASTRAZENECA-2008AP08993

PATIENT
  Sex: Male

DRUGS (3)
  1. QUETIAPINE FUMARATE [Suspect]
  2. RISPERIDONE [Concomitant]
  3. FLUVOXAMINE MALEATE [Concomitant]

REACTIONS (1)
  - THROMBOCYTOPENIA [None]
